FAERS Safety Report 7735687-9 (Version None)
Quarter: 2011Q3

REPORT INFORMATION
  Report Type: 
  Country: None (occurrence: None)
  Receive Date: 20110907
  Receipt Date: 20110901
  Transmission Date: 20111222
  Serious: No
  Sender: FDA-Public Use
  Company Number: NL-ABBOTT-11P-114-0694887-00

PATIENT
  Sex: Female
  Weight: 79 kg

DRUGS (2)
  1. LEUPROLIDE ACETATE [Suspect]
     Indication: BREAST CANCER FEMALE
     Route: 058
     Dates: start: 20091016
  2. TAMOXIFEN CITRATE [Concomitant]
     Indication: BREAST CANCER FEMALE
     Route: 048
     Dates: start: 20090501

REACTIONS (3)
  - HOT FLUSH [None]
  - WEIGHT INCREASED [None]
  - OEDEMA PERIPHERAL [None]
